FAERS Safety Report 17564795 (Version 2)
Quarter: 2020Q2

REPORT INFORMATION
  Report Type: Spontaneous
  Country: GB (occurrence: GB)
  Receive Date: 20200320
  Receipt Date: 20200513
  Transmission Date: 20200713
  Serious: Yes (Death)
  Sender: FDA-Public Use
  Company Number: GB-BAYER-2020-045590

PATIENT
  Age: 61 Year
  Sex: Female

DRUGS (2)
  1. NEXAVAR [Suspect]
     Active Substance: SORAFENIB
     Indication: ACUTE MYELOID LEUKAEMIA RECURRENT
     Dosage: 400 MG, BID
     Dates: start: 20180419, end: 201806
  2. 5-AZACYTIDINE [Concomitant]
     Active Substance: AZACITIDINE
     Indication: ACUTE MYELOID LEUKAEMIA RECURRENT
     Dosage: DAILY DOSE 160 MG
     Dates: end: 20180514

REACTIONS (5)
  - Product use in unapproved indication [None]
  - Acute myeloid leukaemia [Fatal]
  - Respiratory tract infection [Fatal]
  - Off label use [None]
  - Graft versus host disease [Fatal]

NARRATIVE: CASE EVENT DATE: 20181114
